FAERS Safety Report 25923446 (Version 1)
Quarter: 2025Q4

REPORT INFORMATION
  Report Type: Spontaneous
  Country: JP (occurrence: JP)
  Receive Date: 20251015
  Receipt Date: 20251015
  Transmission Date: 20260117
  Serious: Yes (Death, Hospitalization, Other)
  Sender: VIIV
  Company Number: JP-VIIVHC-JP2025JPN130062AA

PATIENT
  Sex: Male

DRUGS (2)
  1. RETROVIR [Suspect]
     Active Substance: ZIDOVUDINE
     Dosage: UNK
  2. VIDEX [Concomitant]
     Active Substance: DIDANOSINE
     Dosage: UNK

REACTIONS (11)
  - Hepatitis fulminant [Fatal]
  - Atypical mycobacterial infection [Unknown]
  - Mediastinal mass [Unknown]
  - Ascites [Unknown]
  - Hepatic atrophy [Unknown]
  - Hepatitis B [Unknown]
  - Mucocutaneous candidiasis [Unknown]
  - Abdominal distension [Unknown]
  - Hepatic function abnormal [Unknown]
  - Hepatitis B surface antigen positive [Unknown]
  - Disease progression [Unknown]
